FAERS Safety Report 9361423 (Version 1)
Quarter: 2013Q2

REPORT INFORMATION
  Report Type: Spontaneous
  Country: FR (occurrence: FR)
  Receive Date: 20130621
  Receipt Date: 20130621
  Transmission Date: 20140414
  Serious: Yes (Death, Hospitalization)
  Sender: FDA-Public Use
  Company Number: FR-TEVA-414028ISR

PATIENT
  Age: 86 Year
  Sex: Female

DRUGS (7)
  1. FUROSEMIDE TEVA 40 MG [Suspect]
     Dosage: 100 MILLIGRAM DAILY;
     Route: 048
     Dates: start: 20130210, end: 20130610
  2. INEXIUM [Suspect]
  3. ZYLORIC [Suspect]
  4. DIFFU K CAPSULES [Suspect]
  5. CARDENSIEL 7.5 MG TABLET [Suspect]
  6. PREVISCAN 20 MG TABLET [Suspect]
  7. CRESTOR [Suspect]

REACTIONS (5)
  - Sudden death [Fatal]
  - Fall [Unknown]
  - Rhabdomyolysis [Unknown]
  - Renal failure acute [Unknown]
  - Hypercapnia [Unknown]
